FAERS Safety Report 16901859 (Version 2)
Quarter: 2022Q1

REPORT INFORMATION
  Report Type: Report from Study
  Country: GB (occurrence: None)
  Receive Date: 20191010
  Receipt Date: 20220112
  Transmission Date: 20220423
  Serious: Yes (Hospitalization)
  Sender: FDA-Public Use
  Company Number: GB-ROCHE-2153111

PATIENT
  Age: 48 Year
  Sex: Male
  Weight: 94.6 kg

DRUGS (22)
  1. POLATUZUMAB VEDOTIN [Suspect]
     Active Substance: POLATUZUMAB VEDOTIN
     Indication: Follicular lymphoma
     Dosage: POLATUZUMAB VEDOTIN VIA IV INFUSION AT DOSE 1.4 OR 1.8 MG/KG ON DAY 1 OF EACH 28-DAY CYCLE?MOST RECE
     Route: 042
     Dates: start: 20180703
  2. OBINUTUZUMAB [Suspect]
     Active Substance: OBINUTUZUMAB
     Indication: Follicular lymphoma
     Dosage: ON DAYS 1, 8 AND 15 OF CYCLE 1 AND ON DAY 1 OF CYCLES 2 TO 6 ?MOST RECENT DOSE ON 03/JUL/2018
     Route: 042
     Dates: start: 20180702
  3. LENALIDOMIDE [Suspect]
     Active Substance: LENALIDOMIDE
     Indication: Follicular lymphoma
     Dosage: 10, 15, OR 20 MG ON DAYS 1 TO 21 OF EACH 28-DAY CYCLE FOR UP TO 6 CYCLES?DATE OF MOST RECENT DOSE (2
     Route: 048
     Dates: start: 20180702
  4. FLUCONAZOLE [Concomitant]
     Active Substance: FLUCONAZOLE
     Dates: start: 20180529
  5. VENLAFAXINE [Concomitant]
     Active Substance: VENLAFAXINE HYDROCHLORIDE
     Indication: Anxiety
     Dates: start: 2008
  6. VENLAFAXINE [Concomitant]
     Active Substance: VENLAFAXINE HYDROCHLORIDE
     Indication: Depression
  7. OMEPRAZOLE [Concomitant]
     Active Substance: OMEPRAZOLE
     Dates: start: 20180529
  8. ACYCLOVIR [Concomitant]
     Active Substance: ACYCLOVIR
     Dates: start: 20180529
  9. COTRIMOXAZOLE [Concomitant]
     Active Substance: SULFAMETHOXAZOLE\TRIMETHOPRIM
     Dates: start: 20180529
  10. DEXAMETHASONE [Concomitant]
     Active Substance: DEXAMETHASONE
     Indication: Infusion related reaction
     Dates: start: 20180702, end: 20180702
  11. CHLORPHENIRAMINE MALEATE [Concomitant]
     Active Substance: CHLORPHENIRAMINE MALEATE
     Indication: Infusion related reaction
     Dates: start: 20180702, end: 20180702
  12. OXYGEN [Concomitant]
     Active Substance: OXYGEN
     Indication: Infusion related reaction
     Dates: start: 20180702, end: 20180702
  13. ASPIRIN [Concomitant]
     Active Substance: ASPIRIN
     Indication: Prophylaxis
     Dates: start: 20180702
  14. DOMPERIDONE [Concomitant]
     Active Substance: DOMPERIDONE
     Indication: Prophylaxis
     Dates: start: 20180702
  15. LOPERAMIDE [Concomitant]
     Active Substance: LOPERAMIDE
     Indication: Prophylaxis
     Dates: start: 20180702
  16. ACETAMINOPHEN [Concomitant]
     Active Substance: ACETAMINOPHEN
     Indication: Infusion related reaction
     Route: 042
     Dates: start: 20180702, end: 20180702
  17. ACETAMINOPHEN [Concomitant]
     Active Substance: ACETAMINOPHEN
     Indication: Pyrexia
     Dates: start: 201808
  18. VORICONAZOLE [Concomitant]
     Active Substance: VORICONAZOLE
     Dates: start: 201808
  19. ENOXAPARIN SODIUM [Concomitant]
     Active Substance: ENOXAPARIN SODIUM
     Dates: start: 201808
  20. INSULIN NOS [Concomitant]
     Active Substance: INSULIN NOS
     Dates: start: 201808
  21. HUMAN RED BLOOD CELL [Concomitant]
     Active Substance: HUMAN RED BLOOD CELL
     Indication: Anaemia
     Dates: start: 201807, end: 201807
  22. ALLOPURINOL [Concomitant]
     Active Substance: ALLOPURINOL
     Indication: Follicular lymphoma
     Dates: start: 20180529

REACTIONS (1)
  - Tumour lysis syndrome [Recovered/Resolved]

NARRATIVE: CASE EVENT DATE: 20180706
